FAERS Safety Report 4534756-4 (Version None)
Quarter: 2004Q4

REPORT INFORMATION
  Report Type: 
  Country: None (occurrence: None)
  Receive Date: 20041222
  Receipt Date: 20040129
  Transmission Date: 20050328
  Serious: No
  Sender: FDA-Public Use
  Company Number: US-BRISTOL-MYERS SQUIBB COMPANY-12492039

PATIENT
  Sex: Female

DRUGS (7)
  1. PRAVACHOL [Suspect]
     Indication: BLOOD CHOLESTEROL INCREASED
     Route: 048
     Dates: end: 20040101
  2. TRICOR [Suspect]
  3. ATENOLOL [Concomitant]
  4. LOTREL [Concomitant]
  5. DYAZIDE [Concomitant]
  6. EVISTA [Concomitant]
  7. DARVOCET [Concomitant]

REACTIONS (3)
  - ABDOMINAL DISCOMFORT [None]
  - MUSCLE CRAMP [None]
  - MYALGIA [None]
